FAERS Safety Report 5410933-5 (Version None)
Quarter: 2007Q3

REPORT INFORMATION
  Report Type: 
  Country: None (occurrence: None)
  Receive Date: 20070810
  Receipt Date: 20070730
  Transmission Date: 20080115
  Serious: Yes (Disabling, Other)
  Sender: FDA-Public Use
  Company Number: HQWYE626710MAY05

PATIENT
  Sex: Female
  Weight: 47.22 kg

DRUGS (1)
  1. EFFEXOR XR [Suspect]
     Indication: ANXIETY
     Route: 048
     Dates: start: 20050408, end: 20050408

REACTIONS (66)
  - ABNORMAL DREAMS [None]
  - AMNESIA [None]
  - ANOREXIA [None]
  - ANXIETY [None]
  - ASTHENIA [None]
  - BACK PAIN [None]
  - BALANCE DISORDER [None]
  - BODY MASS INDEX DECREASED [None]
  - CHILLS [None]
  - COGNITIVE DISORDER [None]
  - CONFUSIONAL STATE [None]
  - DECREASED APPETITE [None]
  - DEHYDRATION [None]
  - DEPERSONALISATION [None]
  - DEPRESSED MOOD [None]
  - DEPRESSION [None]
  - DEREALISATION [None]
  - DISORIENTATION [None]
  - DISSOCIATION [None]
  - DISTURBANCE IN ATTENTION [None]
  - DIZZINESS [None]
  - DREAMY STATE [None]
  - DRUG INTOLERANCE [None]
  - DRUG TOXICITY [None]
  - DYSPNOEA [None]
  - EATING DISORDER [None]
  - FATIGUE [None]
  - FEAR [None]
  - FEELING ABNORMAL [None]
  - FEELING JITTERY [None]
  - FLASHBACK [None]
  - FLAT AFFECT [None]
  - FOOD INTOLERANCE [None]
  - GENERAL PHYSICAL HEALTH DETERIORATION [None]
  - HEADACHE [None]
  - HEART RATE INCREASED [None]
  - HYPERHIDROSIS [None]
  - HYPOKALAEMIA [None]
  - HYPOREFLEXIA [None]
  - HYPOTONIA [None]
  - INJURY [None]
  - INSOMNIA [None]
  - MALAISE [None]
  - METABOLIC DISORDER [None]
  - MUSCLE ATROPHY [None]
  - MUSCULOSKELETAL PAIN [None]
  - NAUSEA [None]
  - NERVOUS SYSTEM DISORDER [None]
  - PAIN [None]
  - PANIC ATTACK [None]
  - POOR QUALITY SLEEP [None]
  - POST-TRAUMATIC STRESS DISORDER [None]
  - POSTURE ABNORMAL [None]
  - PSYCHIATRIC SYMPTOM [None]
  - SEDATION [None]
  - SLEEP DISORDER [None]
  - SLEEP TERROR [None]
  - SOMNOLENCE [None]
  - STRESS [None]
  - SUICIDAL IDEATION [None]
  - TEARFULNESS [None]
  - TREMOR [None]
  - UNEVALUABLE EVENT [None]
  - VERTIGO [None]
  - VOMITING [None]
  - WEIGHT DECREASED [None]
